FAERS Safety Report 4677491-4 (Version None)
Quarter: 2005Q2

REPORT INFORMATION
  Report Type: 
  Country: None (occurrence: None)
  Receive Date: 20050531
  Receipt Date: 20050519
  Transmission Date: 20051028
  Serious: Yes (Disabling)
  Sender: FDA-Public Use
  Company Number: JP-BRISTOL-MYERS SQUIBB COMPANY-12975686

PATIENT
  Age: 70 Year
  Sex: Male

DRUGS (2)
  1. TAXOL [Suspect]
     Indication: GASTRIC CANCER
     Route: 042
  2. TS-1 [Suspect]
     Indication: GASTRIC CANCER
     Route: 048

REACTIONS (1)
  - PARKINSON'S DISEASE [None]
